FAERS Safety Report 13943265 (Version 1)
Quarter: 2017Q3

REPORT INFORMATION
  Report Type: Spontaneous
  Country: US (occurrence: US)
  Receive Date: 20170907
  Receipt Date: 20170907
  Transmission Date: 20171128
  Serious: No
  Sender: FDA-Public Use
  Company Number: US-BAYER-2017-171368

PATIENT
  Age: 54 Year
  Sex: Male
  Weight: 78.96 kg

DRUGS (1)
  1. MIRALAX [Suspect]
     Active Substance: POLYETHYLENE GLYCOL 3350
     Indication: COLONOSCOPY
     Dosage: 15 CAPFULS IN 64 OZ LIQUID DOSE
     Route: 048

REACTIONS (2)
  - Off label use [Unknown]
  - Inappropriate prescribing [Unknown]
